FAERS Safety Report 14009234 (Version 2)
Quarter: 2017Q4

REPORT INFORMATION
  Report Type: Report from Study
  Country: CA (occurrence: CA)
  Receive Date: 20170925
  Receipt Date: 20171005
  Transmission Date: 20180321
  Serious: Yes (Hospitalization, Other)
  Sender: FDA-Public Use
  Company Number: CA-TAKEDA-2017TUS019718

PATIENT
  Age: 75 Year
  Sex: Male

DRUGS (6)
  1. METOPROLOL. [Concomitant]
     Active Substance: METOPROLOL
     Dosage: 25 MG, UNK
  2. VEDOLIZUMAB [Suspect]
     Active Substance: VEDOLIZUMAB
     Indication: CROHN^S DISEASE
     Dosage: 300 MG, UNK
     Route: 042
     Dates: start: 20160411
  3. RIVAROXABAN [Concomitant]
     Active Substance: RIVAROXABAN
     Dosage: UNK
  4. PANTOLOC [Suspect]
     Active Substance: PANTOPRAZOLE SODIUM
     Indication: PRODUCT USED FOR UNKNOWN INDICATION
     Dosage: 40 MG, QD
     Route: 048
  5. PERINDOPRIL [Concomitant]
     Active Substance: PERINDOPRIL
     Dosage: UNK UNK, QD
  6. VEDOLIZUMAB [Suspect]
     Active Substance: VEDOLIZUMAB
     Dosage: 300 MG, Q4WEEKS
     Route: 042
     Dates: start: 20161014

REACTIONS (3)
  - Hip fracture [Recovering/Resolving]
  - Off label use [Unknown]
  - Fall [Unknown]

NARRATIVE: CASE EVENT DATE: 20161014
